FAERS Safety Report 14322368 (Version 4)
Quarter: 2018Q2

REPORT INFORMATION
  Report Type: Spontaneous
  Country: FR (occurrence: FR)
  Receive Date: 20171225
  Receipt Date: 20180611
  Transmission Date: 20180711
  Serious: Yes (Hospitalization, Other)
  Sender: FDA-Public Use
  Company Number: PHHY2017FR191851

PATIENT
  Age: 89 Year
  Sex: Female
  Weight: 55 kg

DRUGS (10)
  1. DIGOXIN. [Suspect]
     Active Substance: DIGOXIN
     Indication: CARDIAC FAILURE
     Dosage: 0.125 MG, QD
     Route: 048
  2. CORDARONE [Interacting]
     Active Substance: AMIODARONE HYDROCHLORIDE
     Indication: ATRIAL FIBRILLATION
  3. ELIQUIS [Interacting]
     Active Substance: APIXABAN
     Indication: CEREBROVASCULAR ACCIDENT PROPHYLAXIS
  4. DIGOXIN. [Suspect]
     Active Substance: DIGOXIN
     Indication: TACHYARRHYTHMIA
     Dosage: UNK
     Route: 042
  5. CORDARONE [Interacting]
     Active Substance: AMIODARONE HYDROCHLORIDE
     Dosage: 200 MG, BID
     Route: 048
     Dates: start: 2000, end: 20170111
  6. CORDARONE [Interacting]
     Active Substance: AMIODARONE HYDROCHLORIDE
     Indication: CONDUCTION DISORDER
  7. FUROSEMIDE. [Interacting]
     Active Substance: FUROSEMIDE
     Indication: TACHYARRHYTHMIA
  8. DIGOXIN. [Suspect]
     Active Substance: DIGOXIN
     Indication: CONDUCTION DISORDER
     Dosage: 0.13 MG, QD
     Route: 048
  9. FUROSEMIDE. [Interacting]
     Active Substance: FUROSEMIDE
     Indication: CARDIAC FAILURE
     Dosage: UNK
     Route: 065
  10. ELIQUIS [Interacting]
     Active Substance: APIXABAN
     Dosage: 5 MG, QD
     Route: 048
     Dates: start: 20170117

REACTIONS (8)
  - Drug interaction [Recovered/Resolved]
  - Orthopnoea [Unknown]
  - Tachyarrhythmia [Unknown]
  - Overdose [Recovered/Resolved]
  - Cardiac failure [Unknown]
  - Drug level increased [Unknown]
  - Toxicity to various agents [Unknown]
  - Dyspnoea [Unknown]

NARRATIVE: CASE EVENT DATE: 20170124
